APPROVED DRUG PRODUCT: CYTARABINE
Active Ingredient: CYTARABINE
Strength: 20MG/ML
Dosage Form/Route: INJECTABLE;INJECTION
Application: A200916 | Product #001
Applicant: PHARMOBEDIENT CONSULTING LLC
Approved: Dec 13, 2011 | RLD: No | RS: No | Type: DISCN